FAERS Safety Report 6335460-2 (Version None)
Quarter: 2009Q3

REPORT INFORMATION
  Report Type: 
  Country: None (occurrence: None)
  Receive Date: 20090831
  Receipt Date: 20090817
  Transmission Date: 20100115
  Serious: Yes (Hospitalization, Other)
  Sender: FDA-Public Use
  Company Number: GB-MYLANLABS-2009S1007231

PATIENT
  Age: 54 Year
  Sex: Male

DRUGS (6)
  1. CIPROFLAXACIN [Suspect]
     Indication: URINARY TRACT INFECTION
     Route: 048
     Dates: start: 20090106, end: 20090118
  2. VIRAMUNE [Suspect]
     Indication: HIV INFECTION
     Route: 048
     Dates: start: 20081119, end: 20090120
  3. CEFRADINE [Concomitant]
     Indication: URINARY TRACT INFECTION
     Route: 048
     Dates: start: 20081223, end: 20081228
  4. COTRIM [Concomitant]
     Indication: ANTIFUNGAL PROPHYLAXIS
     Route: 048
     Dates: start: 20081111, end: 20090120
  5. TETRACYCLINE [Concomitant]
     Indication: URINARY TRACT INFECTION
  6. TRUVADA /01398801/ [Concomitant]
     Indication: HIV INFECTION
     Route: 048
     Dates: start: 20081111, end: 20090401

REACTIONS (5)
  - JAUNDICE [None]
  - LIVER FUNCTION TEST ABNORMAL [None]
  - NEUTROPENIA [None]
  - THROMBOCYTOPENIA [None]
  - URINARY TRACT INFECTION [None]
